FAERS Safety Report 10030894 (Version 2)
Quarter: 2014Q1

REPORT INFORMATION
  Report Type: Spontaneous
  Country: US (occurrence: US)
  Receive Date: 20140323
  Receipt Date: 20140323
  Transmission Date: 20141002
  Serious: No
  Sender: FDA-Public Use
  Company Number: US-ALLERGAN-1315932US

PATIENT
  Age: 41 Year
  Sex: Female

DRUGS (1)
  1. LATISSE 0.03% [Suspect]
     Indication: PRODUCT USED FOR UNKNOWN INDICATION
     Dosage: 2 GTT, QHS
     Route: 061
     Dates: start: 20130821, end: 20131007

REACTIONS (4)
  - Skin tightness [Recovered/Resolved]
  - Erythema of eyelid [Recovered/Resolved]
  - Erythema of eyelid [Recovered/Resolved]
  - Eyelids pruritus [Recovered/Resolved]
